FAERS Safety Report 7407090-2 (Version None)
Quarter: 2011Q2

REPORT INFORMATION
  Report Type: 
  Country: None (occurrence: None)
  Receive Date: 20110411
  Receipt Date: 20110330
  Transmission Date: 20111010
  Serious: Yes (Hospitalization)
  Sender: FDA-Public Use
  Company Number: JP-AMGEN-JPNCT2011011672

PATIENT
  Age: 61 Year
  Sex: Female
  Weight: 55 kg

DRUGS (19)
  1. PANITUMUMAB [Suspect]
     Indication: COLORECTAL CANCER METASTATIC
     Dosage: 6 MG/KG, Q2WK
     Route: 041
     Dates: start: 20101005, end: 20101109
  2. MORPHINE HYDROCHLORIDE [Concomitant]
     Dosage: UNK
     Route: 048
  3. DUROTEP TAKEDA [Concomitant]
     Dosage: UNK
     Route: 062
  4. HIRUDOID [Concomitant]
     Route: 062
  5. PARIET [Concomitant]
     Dosage: UNK
     Route: 048
  6. EMEND [Concomitant]
     Route: 048
  7. OXYCONTIN [Concomitant]
     Dosage: UNK
     Route: 048
  8. OXALIPLATIN [Suspect]
     Indication: COLORECTAL CANCER
     Route: 041
     Dates: start: 20101005, end: 20101130
  9. CALCIUM LEVOFOLINATE [Suspect]
     Indication: COLORECTAL CANCER
     Route: 041
     Dates: start: 20101005, end: 20101130
  10. ANTIHISTAMINES [Concomitant]
     Indication: PROPHYLAXIS
     Dosage: UNK
     Route: 065
  11. GRAN [Concomitant]
     Dosage: UNK
     Route: 042
  12. CORTICOSTEROIDS [Concomitant]
     Indication: PROPHYLAXIS
     Dosage: UNK
     Route: 065
  13. LOCOID [Concomitant]
     Route: 062
  14. DECADRON [Concomitant]
     Route: 048
  15. FENTANYL CITRATE [Concomitant]
     Route: 062
  16. FLUOROURACIL [Suspect]
     Indication: COLORECTAL CANCER
     Route: 040
     Dates: start: 20101005, end: 20101130
  17. FLUOROURACIL [Suspect]
     Route: 041
     Dates: start: 20101005, end: 20101130
  18. MINOMYCIN [Concomitant]
     Dosage: UNK
     Route: 048
  19. MYSER [Concomitant]
     Route: 062

REACTIONS (7)
  - WHITE BLOOD CELL COUNT DECREASED [None]
  - DECREASED APPETITE [None]
  - VOMITING [None]
  - NAUSEA [None]
  - RASH [None]
  - CYSTITIS [None]
  - PRURITUS [None]
